FAERS Safety Report 19304562 (Version 2)
Quarter: 2021Q2

REPORT INFORMATION
  Report Type: Other
  Country: JP (occurrence: JP)
  Receive Date: 20210525
  Receipt Date: 20210531
  Transmission Date: 20210717
  Serious: Yes (Hospitalization)
  Sender: FDA-Public Use
  Company Number: JP-ROCHE-2836877

PATIENT
  Age: 71 Year
  Sex: Female
  Weight: 48 kg

DRUGS (5)
  1. ZYRTEC (JAPAN) [Concomitant]
     Route: 065
  2. ACTEMRA [Suspect]
     Active Substance: TOCILIZUMAB
     Indication: RHEUMATOID ARTHRITIS
     Route: 058
     Dates: start: 20150116, end: 201506
  3. HYPEN (JAPAN) [Concomitant]
     Active Substance: ETODOLAC
     Route: 065
  4. MUCOSTA [Concomitant]
     Active Substance: REBAMIPIDE
     Route: 065
  5. PREDNISOLONE. [Suspect]
     Active Substance: PREDNISOLONE
     Indication: PRODUCT USED FOR UNKNOWN INDICATION
     Route: 048

REACTIONS (2)
  - Post procedural infection [Recovered/Resolved]
  - Device related infection [Recovered/Resolved]

NARRATIVE: CASE EVENT DATE: 20150602
